FAERS Safety Report 16882969 (Version 1)
Quarter: 2019Q4

REPORT INFORMATION
  Report Type: Spontaneous
  Country: US (occurrence: US)
  Receive Date: 20191004
  Receipt Date: 20191004
  Transmission Date: 20200122
  Serious: No
  Sender: FDA-Public Use
  Company Number: US-UNITED THERAPEUTICS-UNT-2019-016146

PATIENT
  Age: 38 Year
  Sex: Female

DRUGS (2)
  1. TYVASO [Suspect]
     Active Substance: TREPROSTINIL
     Indication: PULMONARY ARTERIAL HYPERTENSION
     Dosage: 72 ?G, UNK (3-4 TIMES DAILY)
     Dates: start: 20161202
  2. TYVASO [Suspect]
     Active Substance: TREPROSTINIL
     Dosage: 72 ?G, UNK
     Dates: start: 20170129

REACTIONS (3)
  - Device malfunction [Unknown]
  - Off label use [Unknown]
  - Device battery issue [Unknown]

NARRATIVE: CASE EVENT DATE: 20161202
